FAERS Safety Report 18177413 (Version 1)
Quarter: 2020Q3

REPORT INFORMATION
  Report Type: Report from Study
  Country: NL (occurrence: NL)
  Receive Date: 20200821
  Receipt Date: 20200821
  Transmission Date: 20201103
  Serious: Yes (Other)
  Sender: FDA-Public Use
  Company Number: NL-AUROBINDO-AUR-APL-2020-039305

PATIENT
  Age: 5 Year
  Sex: Female

DRUGS (3)
  1. AMOXICILLIN. [Suspect]
     Active Substance: AMOXICILLIN
     Indication: OTITIS EXTERNA
     Dosage: 4 MILLILITER, 3 TIMES A DAY (250MG/5ML)
     Route: 065
  2. METHYLPHENIDATE. [Suspect]
     Active Substance: METHYLPHENIDATE
     Indication: ATTENTION DEFICIT HYPERACTIVITY DISORDER
     Dosage: 5 MILLIGRAM, TWO TIMES A DAY
     Route: 065
  3. AMOXICILLIN. [Suspect]
     Active Substance: AMOXICILLIN
     Indication: PYREXIA

REACTIONS (3)
  - Crying [Recovered/Resolved]
  - Confusional state [Recovered/Resolved]
  - Hyperhidrosis [Recovered/Resolved]
